FAERS Safety Report 21974105 (Version 1)
Quarter: 2023Q1

REPORT INFORMATION
  Report Type: Spontaneous
  Country: CN (occurrence: CN)
  Receive Date: 20230209
  Receipt Date: 20230209
  Transmission Date: 20230418
  Serious: Yes (Hospitalization, Other)
  Sender: FDA-Public Use
  Company Number: CN-009507513-2302CHN001877

PATIENT
  Age: 74 Year
  Sex: Female
  Weight: 42 kg

DRUGS (2)
  1. CILASTATIN SODIUM\IMIPENEM [Suspect]
     Active Substance: CILASTATIN SODIUM\IMIPENEM
     Indication: Renal abscess
     Dosage: 1 GRAM, Q8H (ALSO REPORTED AS QD)
     Route: 041
     Dates: start: 20230124, end: 20230129
  2. CILASTATIN SODIUM\IMIPENEM [Suspect]
     Active Substance: CILASTATIN SODIUM\IMIPENEM
     Indication: Anti-infective therapy

REACTIONS (2)
  - Toxic encephalopathy [Recovering/Resolving]
  - Product use issue [Unknown]

NARRATIVE: CASE EVENT DATE: 20230124
